FAERS Safety Report 6021550-0 (Version None)
Quarter: 2008Q4

REPORT INFORMATION
  Report Type: 
  Country: None (occurrence: None)
  Receive Date: 20081229
  Receipt Date: 20081217
  Transmission Date: 20090506
  Serious: Yes (Death, Hospitalization)
  Sender: FDA-Public Use
  Company Number: PHHY2008JP33103

PATIENT
  Sex: Male
  Weight: 54 kg

DRUGS (5)
  1. DIOVAN [Suspect]
     Indication: HYPERTENSION
     Dosage: 80 MG
     Route: 048
     Dates: start: 20080701
  2. CRESTOR [Concomitant]
     Dosage: 5 MG, UNK
     Route: 048
     Dates: start: 20080523
  3. KINEDAK [Concomitant]
     Dosage: 150 MG, UNK
     Route: 048
     Dates: start: 20080528
  4. MAGMITT [Concomitant]
     Dosage: 990 MG, UNK
     Route: 048
     Dates: start: 20080528
  5. NOVORAPID [Concomitant]
     Dosage: 10 IU, UNK
     Route: 058
     Dates: start: 20080521

REACTIONS (4)
  - CONTUSION [None]
  - DIABETIC GANGRENE [None]
  - FINGER AMPUTATION [None]
  - SEPSIS [None]
